FAERS Safety Report 21755646 (Version 2)
Quarter: 2022Q4

REPORT INFORMATION
  Report Type: Report from Study
  Country: US (occurrence: US)
  Receive Date: 20221220
  Receipt Date: 20221221
  Transmission Date: 20230112
  Serious: Yes (Death, Hospitalization, Other)
  Sender: FDA-Public Use
  Company Number: US-PFIZER INC-PV202200126561

PATIENT
  Age: 72 Year
  Sex: Male

DRUGS (9)
  1. INLYTA [Suspect]
     Active Substance: AXITINIB
     Dosage: 5 MG, 2X/DAY (Q 12 H)
     Route: 048
     Dates: start: 20221024
  2. ATORVASTATIN [Concomitant]
     Active Substance: ATORVASTATIN
     Dosage: UNK
  3. DONEPEZIL [Concomitant]
     Active Substance: DONEPEZIL
     Dosage: UNK
  4. ENTRESTO [Concomitant]
     Active Substance: SACUBITRIL\VALSARTAN
     Dosage: UNK
  5. LEVOTHYROXINE [Concomitant]
     Active Substance: LEVOTHYROXINE
     Dosage: UNK
  6. MEGESTROL [Concomitant]
     Active Substance: MEGESTROL
     Dosage: UNK
  7. MEMANTINE [Concomitant]
     Active Substance: MEMANTINE
     Dosage: UNK
  8. MINOXIDIL [Concomitant]
     Active Substance: MINOXIDIL
     Dosage: UNK
  9. PANTOPRAZOLE [Concomitant]
     Active Substance: PANTOPRAZOLE
     Dosage: UNK

REACTIONS (3)
  - Death [Fatal]
  - Pleural effusion [Unknown]
  - Illness [Unknown]

NARRATIVE: CASE EVENT DATE: 20221205
